FAERS Safety Report 4597434-1 (Version None)
Quarter: 2005Q1

REPORT INFORMATION
  Report Type: 
  Country: None (occurrence: None)
  Receive Date: 20050303
  Receipt Date: 20050222
  Transmission Date: 20050727
  Serious: Yes (Death)
  Sender: FDA-Public Use
  Company Number: US-JNJFOC-20050205940

PATIENT
  Age: 26 Year
  Sex: Male

DRUGS (5)
  1. TYLENOL (CAPLET) [Suspect]
  2. TYLENOL (CAPLET) [Suspect]
     Indication: PAIN
     Dosage: OCCASIONALLY
  3. STRATTERA [Suspect]
  4. STRATTERA [Suspect]
     Indication: ATTENTION DEFICIT/HYPERACTIVITY DISORDER
     Dosage: 40 MG, INTERMITTENTLY
  5. METHYLPHENIDATE [Concomitant]

REACTIONS (3)
  - DRUG TOXICITY [None]
  - HEPATIC FAILURE [None]
  - RENAL FAILURE [None]
